FAERS Safety Report 26001476 (Version 1)
Quarter: 2025Q4

REPORT INFORMATION
  Report Type: Spontaneous
  Country: US (occurrence: None)
  Receive Date: 20251105
  Receipt Date: 20251105
  Transmission Date: 20260117
  Serious: Yes (Hospitalization)
  Sender: FDA-CTU
  Company Number: None

PATIENT
  Sex: Male

DRUGS (11)
  1. LENALIDOMIDE [Suspect]
     Active Substance: LENALIDOMIDE
     Indication: Plasma cell myeloma
     Dosage: FREQUENCY : DAILY;?
     Route: 048
     Dates: start: 20250812
  2. ACETAMIN TAB 500MG [Concomitant]
  3. ATORVASTATIN TAB 10MG [Concomitant]
  4. BACTRIM TAB 400-S0MG [Concomitant]
  5. CALCIUM 600 TAB +D [Concomitant]
  6. GABAPENTIN [Concomitant]
     Active Substance: GABAPENTIN
  7. IRON TAB 45MG [Concomitant]
  8. OXYCODONE CAP5MG [Concomitant]
  9. POLYETHYLENE GLYCOL 3350 [Concomitant]
     Active Substance: POLYETHYLENE GLYCOL 3350
  10. SENNA CAP 8.6MG [Concomitant]
  11. VITAMIN D3 TAB 25MCG [Concomitant]

REACTIONS (5)
  - Osteomyelitis [None]
  - Dizziness [None]
  - Neuropathy peripheral [None]
  - Deep vein thrombosis [None]
  - Leukopenia [None]
